FAERS Safety Report 21666781 (Version 1)
Quarter: 2022Q4

REPORT INFORMATION
  Report Type: Spontaneous
  Country: US (occurrence: None)
  Receive Date: 20221201
  Receipt Date: 20221201
  Transmission Date: 20230112
  Serious: Yes (Other)
  Sender: FDA-Public Use
  Company Number: US-ROCHE-3226428

PATIENT
  Age: 54 Year
  Sex: Male

DRUGS (3)
  1. OCRELIZUMAB [Suspect]
     Active Substance: OCRELIZUMAB
     Indication: Multiple sclerosis
     Dosage: INITIAL DOSE OF OCRELIZUMAB WAS 12/SEP/2017
     Route: 065
     Dates: start: 20170912, end: 20220525
  2. ATORVASTATIN [Concomitant]
     Active Substance: ATORVASTATIN
  3. CHOLECALCIFEROL [Concomitant]
     Active Substance: CHOLECALCIFEROL

REACTIONS (1)
  - Idiopathic pulmonary fibrosis [Unknown]
